FAERS Safety Report 5642376-3 (Version None)
Quarter: 2008Q1

REPORT INFORMATION
  Report Type: 
  Country: None (occurrence: None)
  Receive Date: 20080227
  Receipt Date: 20080227
  Transmission Date: 20080703
  Serious: Yes (Hospitalization)
  Sender: FDA-Public Use
  Company Number: None

PATIENT
  Sex: Female
  Weight: 44.9061 kg

DRUGS (9)
  1. INSULIN [Suspect]
     Indication: DIABETES MELLITUS
     Dosage: PRIOR TO ER VISIT
  2. ASPIRIN [Concomitant]
  3. METFORMIN HCL [Concomitant]
  4. SERTRALINE [Concomitant]
  5. MOTRIN [Concomitant]
  6. ENALAPRIL MALEATE [Concomitant]
  7. GLIPIZIDE [Concomitant]
  8. PERCOCET [Concomitant]
  9. NEURONTIN [Concomitant]

REACTIONS (2)
  - BLOOD GLUCOSE DECREASED [None]
  - UNRESPONSIVE TO STIMULI [None]
